FAERS Safety Report 4352417-1 (Version None)
Quarter: 2004Q2

REPORT INFORMATION
  Report Type: 
  Country: None (occurrence: None)
  Receive Date: 20040428
  Receipt Date: 20040419
  Transmission Date: 20050107
  Serious: Yes (Hospitalization)
  Sender: FDA-Public Use
  Company Number: 2004CG00753

PATIENT
  Age: 76 Year
  Sex: Female

DRUGS (8)
  1. TENORMIN [Suspect]
     Indication: ATRIAL FIBRILLATION
     Dates: start: 20040305, end: 20040306
  2. SOTALOL HCL [Suspect]
     Indication: ATRIAL FIBRILLATION
     Dates: start: 20040303, end: 20040305
  3. FLECAINE [Concomitant]
  4. PREVISCAN [Concomitant]
  5. TILDIEM [Concomitant]
  6. MOPRAL [Concomitant]
  7. LAMALINE [Concomitant]
  8. IMOVANE [Concomitant]

REACTIONS (3)
  - ELECTROCARDIOGRAM QT PROLONGED [None]
  - TORSADE DE POINTES [None]
  - VENTRICULAR TACHYCARDIA [None]
